FAERS Safety Report 19417672 (Version 1)
Quarter: 2021Q2

REPORT INFORMATION
  Report Type: Spontaneous
  Country: US (occurrence: US)
  Receive Date: 20210615
  Receipt Date: 20210615
  Transmission Date: 20210717
  Serious: Yes (Hospitalization)
  Sender: FDA-Public Use
  Company Number: None

PATIENT
  Age: 83 Year
  Sex: Male

DRUGS (1)
  1. CASIRIVIMAB/IMDEVIMAB [Suspect]
     Active Substance: CASIRIVIMAB\IMDEVIMAB
     Indication: COVID-19
     Dosage: ?          OTHER FREQUENCY:ONCE;?
     Route: 042
     Dates: start: 20210611, end: 20210611

REACTIONS (6)
  - Dyspnoea [None]
  - Cyanosis [None]
  - Malaise [None]
  - COVID-19 [None]
  - Tremor [None]
  - Chills [None]

NARRATIVE: CASE EVENT DATE: 20210611
